FAERS Safety Report 9009312 (Version 1)
Quarter: 2013Q1

REPORT INFORMATION
  Report Type: Spontaneous
  Country: JP (occurrence: JP)
  Receive Date: 20130111
  Receipt Date: 20130111
  Transmission Date: 20140127
  Serious: Yes (Hospitalization, Other)
  Sender: FDA-Public Use
  Company Number: JP-PFIZER INC-2013005965

PATIENT
  Sex: Female

DRUGS (15)
  1. RHEUMATREX [Suspect]
     Dosage: 2MG WEEKLY
  2. ALDACTONE A [Suspect]
  3. BACTRAMIN [Concomitant]
     Indication: PROPHYLAXIS
     Dosage: 1 DF, 1X/DAY
  4. DIART [Concomitant]
  5. DEPAS [Concomitant]
  6. AMLODIPINE [Concomitant]
  7. ADALAT [Concomitant]
  8. SELBEX [Concomitant]
  9. PREDNISOLONE [Concomitant]
  10. GLAKAY [Concomitant]
  11. ONE-ALPHA [Concomitant]
  12. RIMATIL [Concomitant]
  13. TRAMACET [Concomitant]
  14. LOXOMARIN [Concomitant]
  15. MUCOSTA [Concomitant]

REACTIONS (3)
  - Enterocolitis [Unknown]
  - Pneumonia [Recovered/Resolved]
  - Pancytopenia [Not Recovered/Not Resolved]
